FAERS Safety Report 10572781 (Version 1)
Quarter: 2014Q4

REPORT INFORMATION
  Report Type: Spontaneous
  Country: US (occurrence: None)
  Receive Date: 20141107
  Receipt Date: 20141107
  Transmission Date: 20150529
  Serious: Yes (Hospitalization)
  Sender: FDA-Public Use
  Company Number: None

PATIENT
  Age: 70 Year
  Sex: Male
  Weight: 50.98 kg

DRUGS (13)
  1. PREDNISONE. [Concomitant]
     Active Substance: PREDNISONE
  2. CETUXIMAB [Suspect]
     Active Substance: CETUXIMAB
     Indication: HEAD AND NECK CANCER METASTATIC
     Dates: start: 20140618
  3. SYMBICORT [Concomitant]
     Active Substance: BUDESONIDE\FORMOTEROL FUMARATE DIHYDRATE
  4. PAZOPANIB [Suspect]
     Active Substance: PAZOPANIB
     Indication: SQUAMOUS CELL CARCINOMA OF HEAD AND NECK
     Route: 048
     Dates: start: 20140618
  5. MINOCYCLINE [Concomitant]
     Active Substance: MINOCYCLINE\MINOCYCLINE HYDROCHLORIDE
  6. ONDANSETRON [Concomitant]
     Active Substance: ONDANSETRON
  7. CETUXIMAB [Suspect]
     Active Substance: CETUXIMAB
     Indication: SQUAMOUS CELL CARCINOMA OF HEAD AND NECK
     Dates: start: 20140618
  8. MEGESTROL [Concomitant]
     Active Substance: MEGESTROL
  9. NEXIUM [Concomitant]
     Active Substance: ESOMEPRAZOLE MAGNESIUM
  10. PAZOPANIB [Suspect]
     Active Substance: PAZOPANIB
     Indication: HEAD AND NECK CANCER METASTATIC
     Route: 048
     Dates: start: 20140618
  11. WARFARIN [Concomitant]
     Active Substance: WARFARIN
  12. OXYCODONE [Concomitant]
     Active Substance: OXYCODONE
  13. SENNA [Concomitant]
     Active Substance: SENNA LEAF\SENNOSIDES\SENNOSIDES A AND B

REACTIONS (6)
  - Productive cough [None]
  - Decreased appetite [None]
  - Chest pain [None]
  - Fatigue [None]
  - Dyspnoea [None]
  - Pneumothorax [None]

NARRATIVE: CASE EVENT DATE: 20141105
